FAERS Safety Report 12195898 (Version 4)
Quarter: 2016Q2

REPORT INFORMATION
  Report Type: Report from Study
  Country: CA (occurrence: CA)
  Receive Date: 20160321
  Receipt Date: 20160503
  Transmission Date: 20160815
  Serious: Yes (Hospitalization, Other)
  Sender: FDA-Public Use
  Company Number: CA-ALEXION PHARMACEUTICALS INC-A201601962

PATIENT
  Age: 61 Year
  Sex: Female
  Weight: 63 kg

DRUGS (7)
  1. SOLIRIS [Suspect]
     Active Substance: ECULIZUMAB
     Dosage: 1200 MG, Q2W
     Route: 042
     Dates: start: 20160330
  2. BRICANYL [Concomitant]
     Active Substance: TERBUTALINE SULFATE
     Indication: ASTHMA
     Dosage: UNK, QD
     Route: 065
     Dates: start: 1980
  3. SYMBICORT [Concomitant]
     Active Substance: BUDESONIDE\FORMOTEROL FUMARATE DIHYDRATE
     Indication: ASTHMA
     Dosage: UNK, BID
     Route: 065
     Dates: start: 1980
  4. TYLENOL [Concomitant]
     Active Substance: ACETAMINOPHEN
     Indication: PAIN
     Dosage: 650 MG, PRN
     Route: 048
  5. SOLIRIS [Suspect]
     Active Substance: ECULIZUMAB
     Indication: HAEMOLYTIC URAEMIC SYNDROME
     Dosage: 900 MG, QW
     Route: 042
     Dates: start: 20160224
  6. VENTOLIN [Concomitant]
     Active Substance: ALBUTEROL SULFATE
     Indication: ASTHMA
     Dosage: UNK, PRN
     Route: 065
     Dates: start: 1980
  7. GRAVOL [Concomitant]
     Active Substance: DIMENHYDRINATE
     Indication: PROCEDURAL NAUSEA
     Dosage: 50 MG, BID
     Route: 048

REACTIONS (5)
  - Diverticulitis [Not Recovered/Not Resolved]
  - Frustration tolerance decreased [Unknown]
  - Contusion [Not Recovered/Not Resolved]
  - Headache [Recovered/Resolved]
  - Rash generalised [Not Recovered/Not Resolved]

NARRATIVE: CASE EVENT DATE: 201603
